FAERS Safety Report 18499774 (Version 1)
Quarter: 2020Q4

REPORT INFORMATION
  Report Type: Spontaneous
  Country: US (occurrence: US)
  Receive Date: 20201113
  Receipt Date: 20201113
  Transmission Date: 20210114
  Serious: No
  Sender: FDA-Public Use
  Company Number: US-SA-2020SA319867

PATIENT

DRUGS (8)
  1. LOSARTAN POTASSIUM. [Concomitant]
     Active Substance: LOSARTAN POTASSIUM
  2. DUPIXENT [Suspect]
     Active Substance: DUPILUMAB
     Dosage: 300 MG, QOW
     Route: 058
     Dates: start: 20200416
  3. CLONIDINE. [Concomitant]
     Active Substance: CLONIDINE
  4. DILT-XR [Concomitant]
     Active Substance: DILTIAZEM
  5. AMITRIPTYLIN [Concomitant]
     Active Substance: AMITRIPTYLINE
  6. METHOTREXATE. [Concomitant]
     Active Substance: METHOTREXATE
  7. HYDROCODONE/ACETAMINOPHEN [Concomitant]
     Active Substance: ACETAMINOPHEN\HYDROCODONE
  8. TIZANIDINE. [Concomitant]
     Active Substance: TIZANIDINE

REACTIONS (3)
  - Sleep disorder [Not Recovered/Not Resolved]
  - Product dose omission issue [Unknown]
  - Condition aggravated [Not Recovered/Not Resolved]

NARRATIVE: CASE EVENT DATE: 2020
